FAERS Safety Report 4418572-X (Version None)
Quarter: 2004Q3

REPORT INFORMATION
  Report Type: 
  Country: None (occurrence: None)
  Receive Date: 20040805
  Receipt Date: 20040805
  Transmission Date: 20050211
  Serious: Yes (Other)
  Sender: FDA-Public Use
  Company Number: None

PATIENT
  Age: 20 Year
  Sex: Male
  Weight: 74.3899 kg

DRUGS (1)
  1. ABILIFY [Suspect]
     Indication: INTERMITTENT EXPLOSIVE DISORDER
     Dosage: ORAL @HS
     Route: 048
     Dates: start: 20040727

REACTIONS (5)
  - DYSPNOEA [None]
  - FATIGUE [None]
  - FEELING ABNORMAL [None]
  - HYPERHIDROSIS [None]
  - MALAISE [None]
